FAERS Safety Report 5479235-5 (Version None)
Quarter: 2007Q4

REPORT INFORMATION
  Report Type: 
  Country: None (occurrence: None)
  Receive Date: 20071008
  Receipt Date: 20070928
  Transmission Date: 20080405
  Serious: Yes (Hospitalization)
  Sender: FDA-Public Use
  Company Number: PHBS2007CH16107

PATIENT
  Age: 46 Year
  Sex: Female

DRUGS (3)
  1. CIPRALEX [Concomitant]
     Dosage: 10MG/D
     Route: 065
  2. DETRUSITOL [Concomitant]
     Dosage: 4MG/D
     Route: 065
  3. LEPONEX [Suspect]
     Indication: PERSONALITY DISORDER
     Dosage: 500MG/D
     Route: 065
     Dates: start: 20030611, end: 20070824

REACTIONS (3)
  - AGRANULOCYTOSIS [None]
  - ERYSIPELAS [None]
  - WHITE BLOOD CELL COUNT DECREASED [None]
